FAERS Safety Report 9373403 (Version 1)
Quarter: 2013Q2

REPORT INFORMATION
  Report Type: Spontaneous
  Country: US (occurrence: US)
  Receive Date: 20130627
  Receipt Date: 20130627
  Transmission Date: 20140414
  Serious: Yes (Other)
  Sender: FDA-Public Use
  Company Number: CHPA2013US010257

PATIENT
  Sex: Female

DRUGS (1)
  1. GAS-X CHEWABLE TABLETS PEPPERMINT CREME [Suspect]
     Indication: NEUROGENIC BOWEL
     Dosage: UNK, UNK
     Route: 048
     Dates: start: 1997

REACTIONS (3)
  - Asthma [Not Recovered/Not Resolved]
  - Osteoarthritis [Not Recovered/Not Resolved]
  - Off label use [Unknown]
